FAERS Safety Report 6511998-X (Version None)
Quarter: 2009Q4

REPORT INFORMATION
  Report Type: 
  Country: None (occurrence: None)
  Receive Date: 20091222
  Receipt Date: 20090513
  Transmission Date: 20100525
  Serious: No
  Sender: FDA-Public Use
  Company Number: US-ASTRAZENECA-2009UW12421

PATIENT
  Age: 68 Year
  Sex: Male
  Weight: 81.6 kg

DRUGS (3)
  1. CRESTOR [Suspect]
     Route: 048
  2. DIAZIDE [Concomitant]
     Indication: MENIERE'S DISEASE
  3. ERGOLOID [Concomitant]
     Indication: COGNITIVE DISORDER

REACTIONS (1)
  - CONTUSION [None]
